FAERS Safety Report 19887675 (Version 1)
Quarter: 2021Q3

REPORT INFORMATION
  Report Type: Spontaneous
  Country: ES (occurrence: ES)
  Receive Date: 20210928
  Receipt Date: 20210928
  Transmission Date: 20211014
  Serious: Yes (Other)
  Sender: FDA-Public Use
  Company Number: NVSC2021ES213769

PATIENT
  Age: 85 Year
  Sex: Male

DRUGS (5)
  1. ENTRESTO [Suspect]
     Active Substance: SACUBITRIL\VALSARTAN
     Dosage: 49 MG
     Route: 048
  2. ENTRESTO [Suspect]
     Active Substance: SACUBITRIL\VALSARTAN
     Dosage: UNK
     Route: 048
  3. ENTRESTO [Suspect]
     Active Substance: SACUBITRIL\VALSARTAN
     Dosage: UNK
     Route: 065
  4. ENTRESTO [Suspect]
     Active Substance: SACUBITRIL\VALSARTAN
     Indication: CARDIAC FAILURE
     Dosage: 25 MG
     Route: 048
  5. ENTRESTO [Suspect]
     Active Substance: SACUBITRIL\VALSARTAN
     Dosage: 25 MG
     Route: 048

REACTIONS (16)
  - Respiratory distress [Recovered/Resolved]
  - Respiratory distress [Recovering/Resolving]
  - Joint swelling [Recovered/Resolved]
  - Middle ear effusion [Recovering/Resolving]
  - Gait disturbance [Recovering/Resolving]
  - Middle ear effusion [Recovered/Resolved]
  - Joint swelling [Recovering/Resolving]
  - Pulmonary oedema [Recovered/Resolved]
  - Hypertension [Unknown]
  - Pulmonary oedema [Recovering/Resolving]
  - Fatigue [Unknown]
  - Cardiac output decreased [Unknown]
  - Gait disturbance [Recovered/Resolved]
  - Penile swelling [Recovered/Resolved]
  - Penile swelling [Recovering/Resolving]
  - Fatigue [Recovered/Resolved]
